FAERS Safety Report 8215755-8 (Version None)
Quarter: 2012Q1

REPORT INFORMATION
  Report Type: 
  Country: None (occurrence: None)
  Receive Date: 20120316
  Receipt Date: 20120312
  Transmission Date: 20120608
  Serious: Yes (Death, Other)
  Sender: FDA-Public Use
  Company Number: US-BAYER-201012051NA

PATIENT
  Age: 66 Year
  Sex: Male
  Weight: 130.61 kg

DRUGS (15)
  1. POTASSIUM [Concomitant]
     Dosage: 8 MEQ, BID
  2. EPHEDRINE [Concomitant]
     Dosage: 10 MG, UNK
     Dates: start: 19990405
  3. TRASYLOL [Suspect]
     Dosage: 100 CC OVER 20 MINUTES
     Route: 042
     Dates: start: 19990405
  4. LIPITOR [Concomitant]
     Dosage: 20 MG EVERY EVENING
     Route: 048
  5. ANCEF [Concomitant]
     Dosage: 2 G, UNK
     Route: 042
     Dates: start: 19990405
  6. PAVULON [Concomitant]
     Dosage: 12 MG, UNK
     Route: 042
     Dates: start: 19990405
  7. TRASYLOL [Suspect]
     Indication: CORONARY ARTERY BYPASS
     Dosage: 1 ML, UNK
     Route: 042
     Dates: start: 20030304
  8. TRASYLOL [Suspect]
     Dosage: 25 CC / HOUR
     Route: 042
     Dates: start: 19990405
  9. VANCOMYCIN [Concomitant]
     Dosage: 1 G, UNK
     Route: 042
     Dates: start: 19990405
  10. SOLU-CORTEF [Concomitant]
     Dosage: 5 MG, UNK
     Dates: start: 19990405
  11. FORANE [Concomitant]
     Dosage: 1 % DRIP
     Route: 042
     Dates: start: 19990405
  12. VERSED [Concomitant]
  13. HEPARIN [Concomitant]
     Dosage: UNK
     Route: 042
     Dates: start: 19990405
  14. ASPIRIN [Concomitant]
     Dosage: 325 MG, QD
     Route: 048
  15. DEMADEX [Concomitant]
     Dosage: 60 MG, QD
     Route: 048

REACTIONS (13)
  - DEATH [None]
  - UNEVALUABLE EVENT [None]
  - MULTI-ORGAN FAILURE [None]
  - EMOTIONAL DISTRESS [None]
  - ANXIETY [None]
  - PAIN [None]
  - STRESS [None]
  - FEAR [None]
  - ANHEDONIA [None]
  - INJURY [None]
  - RENAL FAILURE [None]
  - RENAL IMPAIRMENT [None]
  - RENAL INJURY [None]
